FAERS Safety Report 6318452-9 (Version None)
Quarter: 2009Q3

REPORT INFORMATION
  Report Type: 
  Country: None (occurrence: None)
  Receive Date: 20090821
  Receipt Date: 20090812
  Transmission Date: 20100115
  Serious: Yes (Other)
  Sender: FDA-Public Use
  Company Number: US-BAYER-200929677NA

PATIENT
  Age: 70 Year
  Sex: Female

DRUGS (5)
  1. AVELOX [Suspect]
     Indication: DRUG USE FOR UNKNOWN INDICATION
  2. ADVAIR HFA [Concomitant]
  3. MIACALCIN [Concomitant]
  4. ASPIRIN [Concomitant]
  5. NIACIN [Concomitant]

REACTIONS (8)
  - BLOOD POTASSIUM DECREASED [None]
  - BLOOD PRESSURE DECREASED [None]
  - DRY MOUTH [None]
  - DYSPNOEA [None]
  - HYPERSENSITIVITY [None]
  - PARAESTHESIA [None]
  - PRURITUS [None]
  - RASH [None]
